FAERS Safety Report 17999960 (Version 1)
Quarter: 2020Q3

REPORT INFORMATION
  Report Type: Spontaneous
  Country: US (occurrence: US)
  Receive Date: 20200709
  Receipt Date: 20200709
  Transmission Date: 20201103
  Serious: Yes (Other)
  Sender: FDA-Public Use
  Company Number: None

PATIENT
  Age: 27 Year
  Sex: Male

DRUGS (3)
  1. SERTRALINE [Concomitant]
     Active Substance: SERTRALINE HYDROCHLORIDE
     Dates: start: 20190603
  2. HYDROXYZINE 50 MG [Concomitant]
     Dates: start: 20200521
  3. LAMOTRIGINE. [Suspect]
     Active Substance: LAMOTRIGINE
     Indication: BEHAVIOUR DISORDER
     Dosage: ?          OTHER FREQUENCY:TITRATION;?
     Route: 048
     Dates: start: 20191212, end: 20200708

REACTIONS (2)
  - Burning sensation [None]
  - Skin burning sensation [None]

NARRATIVE: CASE EVENT DATE: 20200708
